FAERS Safety Report 10019785 (Version 1)
Quarter: 2014Q1

REPORT INFORMATION
  Report Type: Spontaneous
  Country: US (occurrence: US)
  Receive Date: 20140318
  Receipt Date: 20140318
  Transmission Date: 20141002
  Serious: No
  Sender: FDA-Public Use
  Company Number: US-GALDERMA-US13003805

PATIENT
  Age: 58 Year
  Sex: Female

DRUGS (2)
  1. MIRVASO (BRIMONIDINE) TOPICAL GEL, 0.33% [Suspect]
     Indication: ERYTHEMA
     Dosage: 0.33%
     Route: 061
     Dates: start: 201310, end: 20131027
  2. SKINCEUTICALS FOAMING WASH [Concomitant]
     Indication: THERAPEUTIC SKIN CARE TOPICAL
     Route: 061

REACTIONS (4)
  - Urticaria [Recovered/Resolved]
  - Blister [Recovered/Resolved]
  - Drug effect decreased [Recovered/Resolved]
  - Off label use [Recovered/Resolved]
